FAERS Safety Report 7463546-8 (Version None)
Quarter: 2011Q2

REPORT INFORMATION
  Report Type: 
  Country: None (occurrence: None)
  Receive Date: 20110506
  Receipt Date: 20110428
  Transmission Date: 20111010
  Serious: Yes (Other)
  Sender: FDA-Public Use
  Company Number: PHHY2011FR37282

PATIENT
  Age: 8 Year
  Sex: Male

DRUGS (1)
  1. COARTEM [Suspect]

REACTIONS (4)
  - HAEMOLYSIS [None]
  - BLOOD LACTATE DEHYDROGENASE INCREASED [None]
  - PLASMODIUM FALCIPARUM INFECTION [None]
  - HAEMOGLOBIN DECREASED [None]
